FAERS Safety Report 8219766-8 (Version None)
Quarter: 2012Q1

REPORT INFORMATION
  Report Type: 
  Country: None (occurrence: None)
  Receive Date: 20120319
  Receipt Date: 20120313
  Transmission Date: 20120608
  Serious: No
  Sender: FDA-Public Use
  Company Number: US-PFIZER INC-2012066643

PATIENT
  Sex: Female
  Weight: 104 kg

DRUGS (1)
  1. AROMASIN [Suspect]
     Indication: BREAST CANCER FEMALE
     Dosage: UNK

REACTIONS (1)
  - OESTROGEN DEFICIENCY [None]
